FAERS Safety Report 7738915-9 (Version None)
Quarter: 2011Q3

REPORT INFORMATION
  Report Type: 
  Country: None (occurrence: None)
  Receive Date: 20110909
  Receipt Date: 20110830
  Transmission Date: 20111222
  Serious: No
  Sender: FDA-Public Use
  Company Number: US-BIOGENIDEC-2010BI017273

PATIENT
  Age: 43 Year
  Sex: Female

DRUGS (1)
  1. TYSABRI [Suspect]
     Indication: MULTIPLE SCLEROSIS
     Route: 042
     Dates: start: 20090727

REACTIONS (8)
  - CARPAL TUNNEL SYNDROME [None]
  - CARPAL TUNNEL DECOMPRESSION [None]
  - URINARY INCONTINENCE [None]
  - APHASIA [None]
  - TENDON DISORDER [None]
  - PAIN IN EXTREMITY [None]
  - FATIGUE [None]
  - ARTHRALGIA [None]
